FAERS Safety Report 9578555 (Version 1)
Quarter: 2013Q4

REPORT INFORMATION
  Report Type: Spontaneous
  Country: US (occurrence: US)
  Receive Date: 20131001
  Receipt Date: 20131001
  Transmission Date: 20140711
  Serious: No
  Sender: FDA-Public Use
  Company Number: US-AMGEN-USASP2013014004

PATIENT
  Sex: Female

DRUGS (6)
  1. ENBREL [Suspect]
     Indication: RHEUMATOID ARTHRITIS
     Dosage: 50 MG, QWK
     Route: 058
  2. METHOTREXATE [Concomitant]
     Dosage: 2.5 MG, UNK
  3. CYMBALTA [Concomitant]
     Dosage: 30 MG, UNK
  4. WELLBUTRIN [Concomitant]
     Dosage: 100 MG, UNK
  5. FOLIC ACID [Concomitant]
     Dosage: UNK
  6. MOTRIN IB [Concomitant]
     Dosage: 200 MG, UNK

REACTIONS (7)
  - Pruritus [Unknown]
  - Headache [Unknown]
  - Local swelling [Unknown]
  - Myalgia [Unknown]
  - Neck pain [Unknown]
  - Musculoskeletal pain [Unknown]
  - Pain in extremity [Unknown]
